FAERS Safety Report 6582906-0 (Version None)
Quarter: 2010Q1

REPORT INFORMATION
  Report Type: 
  Country: None (occurrence: None)
  Receive Date: 20100216
  Receipt Date: 20100208
  Transmission Date: 20100710
  Serious: Yes (Other)
  Sender: FDA-Public Use
  Company Number: US-SANOFI-AVENTIS-2010SA007636

PATIENT
  Sex: Female

DRUGS (2)
  1. AMBIEN [Suspect]
     Route: 048
     Dates: start: 20060101
  2. ZOLPIDEM TARTRATE [Suspect]
     Route: 048
     Dates: end: 20090101

REACTIONS (4)
  - ADRENAL DISORDER [None]
  - BREAST CANCER [None]
  - RASH [None]
  - THYROID DISORDER [None]
